FAERS Safety Report 5275625-4 (Version None)
Quarter: 2007Q1

REPORT INFORMATION
  Report Type: 
  Country: None (occurrence: None)
  Receive Date: 20070326
  Receipt Date: 20070312
  Transmission Date: 20070707
  Serious: Yes (Other)
  Sender: FDA-Public Use
  Company Number: PHNU2006DE03160

PATIENT
  Sex: Female

DRUGS (1)
  1. TEGRETOL [Suspect]
     Indication: EPILEPSY
     Dosage: 200 MG/DAY
     Route: 048

REACTIONS (3)
  - LIVER FUNCTION TEST ABNORMAL [None]
  - OVERWEIGHT [None]
  - POLYARTHRITIS [None]
